FAERS Safety Report 16868549 (Version 1)
Quarter: 2019Q3

REPORT INFORMATION
  Report Type: Report from Study
  Country: CN (occurrence: CN)
  Receive Date: 20190930
  Receipt Date: 20190930
  Transmission Date: 20191005
  Serious: Yes (Other)
  Sender: FDA-Public Use
  Company Number: CN-PFIZER INC-2019411614

PATIENT

DRUGS (1)
  1. TYGACIL [Suspect]
     Active Substance: TIGECYCLINE
     Dosage: 100 MG, 1X/DAY
     Route: 041

REACTIONS (1)
  - Liver injury [Not Recovered/Not Resolved]
